FAERS Safety Report 7518594-6 (Version None)
Quarter: 2011Q2

REPORT INFORMATION
  Report Type: 
  Country: None (occurrence: None)
  Receive Date: 20110602
  Receipt Date: 20110525
  Transmission Date: 20111010
  Serious: Yes (Disabling, Other)
  Sender: FDA-Public Use
  Company Number: GB-PFIZER INC-2010071620

PATIENT
  Age: 29 Year
  Sex: Male

DRUGS (3)
  1. ZOLEDRONIC ACID [Interacting]
     Indication: METASTASES TO BONE
     Dosage: 4 MG, EVERY 28 DAYS
     Route: 042
     Dates: start: 20050401, end: 20061001
  2. PAMIDRONIC ACID [Concomitant]
  3. SUNITINIB MALATE [Suspect]
     Indication: METASTATIC RENAL CELL CARCINOMA
     Dosage: 37.5 MG, 1X/DAY
     Route: 048
     Dates: start: 20060629

REACTIONS (6)
  - DRUG INTERACTION [None]
  - GINGIVITIS [None]
  - STOMATITIS [None]
  - EXPOSED BONE IN JAW [None]
  - SKIN EXFOLIATION [None]
  - OSTEONECROSIS OF JAW [None]
